FAERS Safety Report 14795838 (Version 2)
Quarter: 2018Q3

REPORT INFORMATION
  Report Type: Report from Study
  Country: US (occurrence: US)
  Receive Date: 20180423
  Receipt Date: 20180719
  Transmission Date: 20181010
  Serious: No
  Sender: FDA-Public Use
  Company Number: US-AMGEN-USASL2018013702

PATIENT
  Age: 79 Year
  Sex: Female

DRUGS (2)
  1. REPATHA [Suspect]
     Active Substance: EVOLOCUMAB
     Indication: BLOOD CHOLESTEROL INCREASED
     Dosage: 140 MG, Q2WK
     Route: 065
     Dates: start: 20180112
  2. REPATHA [Suspect]
     Active Substance: EVOLOCUMAB
     Indication: HYPERCHOLESTEROLAEMIA

REACTIONS (4)
  - Muscle spasms [Recovering/Resolving]
  - Injection site pain [Unknown]
  - Balance disorder [Unknown]
  - Incorrect dose administered by device [Unknown]

NARRATIVE: CASE EVENT DATE: 2018
